FAERS Safety Report 25766599 (Version 1)
Quarter: 2025Q3

REPORT INFORMATION
  Report Type: Spontaneous
  Country: US (occurrence: None)
  Receive Date: 20250903
  Receipt Date: 20250903
  Transmission Date: 20251020
  Serious: Yes (Death)
  Sender: FDA-CTU
  Company Number: None

PATIENT
  Age: 67 Year
  Sex: Male
  Weight: 124 kg

DRUGS (11)
  1. ERLEADA [Suspect]
     Active Substance: APALUTAMIDE
     Indication: Prostate cancer
     Route: 048
     Dates: start: 20230626
  2. ELIQUIS 5 MG TABLETS [Concomitant]
     Dates: start: 20250616
  3. TAMSULOSIN [Concomitant]
     Active Substance: TAMSULOSIN
     Dates: start: 20240916
  4. LOSARTAN 100 MG TABLETS [Concomitant]
     Dates: start: 20240916
  5. ATORVASTATIN [Concomitant]
     Active Substance: ATORVASTATIN
     Dates: start: 20230626
  6. CALCIUM ACETATE 667 MG CAPSULES [Concomitant]
     Dates: start: 20230626
  7. CARVEDILOL [Concomitant]
     Active Substance: CARVEDILOL
     Dates: start: 20230626
  8. CIMETIDINE 200 MG TABLETS [Concomitant]
     Dates: start: 20230626
  9. SODIUM BICARBONATE 650 MG [Concomitant]
     Dates: start: 20230626
  10. OXYCODONE [Concomitant]
     Active Substance: OXYCODONE
     Dates: start: 20230626
  11. TIZANIDINE [Concomitant]
     Active Substance: TIZANIDINE
     Dates: start: 20240916

REACTIONS (1)
  - Death [None]

NARRATIVE: CASE EVENT DATE: 20250903
